FAERS Safety Report 7694457-0 (Version None)
Quarter: 2011Q3

REPORT INFORMATION
  Report Type: 
  Country: None (occurrence: None)
  Receive Date: 20110819
  Receipt Date: 20110805
  Transmission Date: 20111222
  Serious: Yes (Hospitalization, Other)
  Sender: FDA-Public Use
  Company Number: PHHY2011US71904

PATIENT
  Age: 28 Year
  Sex: Female

DRUGS (1)
  1. METHERGINE [Suspect]
     Indication: VAGINAL HAEMORRHAGE
     Dosage: 0.2 MG, TID FOR 6 DOSES
     Route: 048

REACTIONS (11)
  - MYOCARDIAL INFARCTION [None]
  - VASCULITIS [None]
  - DYSPNOEA [None]
  - NAUSEA [None]
  - VOMITING [None]
  - CARDIOMEGALY [None]
  - ANGINA PECTORIS [None]
  - HYPERHIDROSIS [None]
  - ARTERIOSCLEROSIS [None]
  - CHEST DISCOMFORT [None]
  - CORONARY ARTERY OCCLUSION [None]
